FAERS Safety Report 18450446 (Version 1)
Quarter: 2020Q4

REPORT INFORMATION
  Report Type: Report from Study
  Country: BR (occurrence: BR)
  Receive Date: 20201030
  Receipt Date: 20201030
  Transmission Date: 20210114
  Serious: Yes (Death, Life-Threatening, Other)
  Sender: FDA-Public Use
  Company Number: BR-GILEAD-2020-0498785

PATIENT
  Age: 63 Year
  Sex: Female
  Weight: 109 kg

DRUGS (24)
  1. METHYLPREDNISOLON [METHYLPREDNISOLONE] [Concomitant]
     Active Substance: METHYLPREDNISOLONE
     Indication: COVID-19 PNEUMONIA
     Dosage: 62.5 MG
     Dates: start: 20201001, end: 20201001
  2. VASOPRESSIN. [Concomitant]
     Active Substance: VASOPRESSIN
     Indication: HYPOTENSION
     Route: 041
     Dates: start: 20201001, end: 20201002
  3. HYPROMELLOSE [Concomitant]
     Active Substance: HYPROMELLOSES
  4. KETAMINE [Concomitant]
     Active Substance: KETAMINE
  5. ETOMIDATE. [Concomitant]
     Active Substance: ETOMIDATE
     Dosage: 20 MG
     Dates: start: 20201001, end: 20201001
  6. MIDAZOLAM. [Concomitant]
     Active Substance: MIDAZOLAM
     Dosage: 60 ML
     Route: 041
     Dates: start: 20201001
  7. CEFTRIAXONE. [Concomitant]
     Active Substance: CEFTRIAXONE
     Indication: COVID-19 PNEUMONIA
     Dosage: 1 G
     Dates: start: 20200927, end: 20200930
  8. LOSARTAN. [Concomitant]
     Active Substance: LOSARTAN
     Indication: HYPERTENSION
     Dosage: 50 MG
     Dates: start: 20150601
  9. FENTANYL. [Concomitant]
     Active Substance: FENTANYL
     Dosage: 60 ML
     Route: 041
     Dates: start: 20201001
  10. OMEPRAZOLE. [Concomitant]
     Active Substance: OMEPRAZOLE
     Dosage: 40 MG
     Dates: start: 20200930
  11. CISATRACURIO [Concomitant]
     Indication: NEUROMUSCULAR BLOCKADE
     Dosage: 2 MG
     Dates: start: 20201001, end: 20201001
  12. BROMOPRIDE [Concomitant]
     Active Substance: BROMOPRIDE
  13. TOCILIZUMAB. [Suspect]
     Active Substance: TOCILIZUMAB
     Indication: COVID-19 PNEUMONIA
     Dosage: UNK
     Route: 042
     Dates: start: 20201002
  14. FENTANYL. [Concomitant]
     Active Substance: FENTANYL
     Dates: start: 20201001, end: 20201001
  15. REMDESIVIR. [Suspect]
     Active Substance: REMDESIVIR
     Indication: COVID-19 PNEUMONIA
     Dosage: 200 MG, QD
     Route: 042
     Dates: start: 20201002
  16. AZITHROMYCIN ANHYDROUS. [Concomitant]
     Active Substance: AZITHROMYCIN ANHYDROUS
     Indication: COVID-19 PNEUMONIA
     Dates: start: 20200927, end: 20200930
  17. HYDROCORTISONE. [Concomitant]
     Active Substance: HYDROCORTISONE
     Indication: COVID-19 PNEUMONIA
     Dosage: 200 MG
     Dates: start: 20201001, end: 20201001
  18. BLOOD PLASMA [Concomitant]
     Active Substance: HUMAN PLASMA
  19. DEXAMETHASONE. [Concomitant]
     Active Substance: DEXAMETHASONE
     Indication: COVID-19 PNEUMONIA
     Dosage: 6 MG
     Dates: start: 20201001
  20. ENOXAPARIN [Concomitant]
     Active Substance: ENOXAPARIN
     Dosage: 6 MG
     Dates: start: 20200930, end: 20201001
  21. SIMVASTATIN. [Concomitant]
     Active Substance: SIMVASTATIN
     Indication: DYSLIPIDAEMIA
     Dosage: 20 MG
     Dates: start: 20150601, end: 20201001
  22. LEVOTHYROXINE. [Concomitant]
     Active Substance: LEVOTHYROXINE
     Indication: HYPOTHYROIDISM
     Dates: start: 20000601
  23. CISATRACURIO [Concomitant]
     Dosage: 20 ML
     Route: 041
     Dates: start: 20201001
  24. NORADRENALINE [NOREPINEPHRINE] [Concomitant]
     Active Substance: NOREPINEPHRINE
     Indication: HYPOTENSION
     Dosage: 20 ML
     Route: 041
     Dates: start: 20201001

REACTIONS (2)
  - Acute kidney injury [Not Recovered/Not Resolved]
  - Pneumonia acinetobacter [Fatal]

NARRATIVE: CASE EVENT DATE: 20201007
